FAERS Safety Report 14943638 (Version 1)
Quarter: 2018Q2

REPORT INFORMATION
  Report Type: Report from Study
  Country: None (occurrence: IE)
  Receive Date: 20180528
  Receipt Date: 20180528
  Transmission Date: 20180711
  Serious: Yes (Other)
  Sender: FDA-Public Use
  Company Number: IE-ABBVIE-18K-229-2365336-00

PATIENT
  Sex: Female

DRUGS (1)
  1. HUMIRA [Suspect]
     Active Substance: ADALIMUMAB
     Indication: RHEUMATOID ARTHRITIS
     Route: 058
     Dates: start: 2016

REACTIONS (2)
  - Malaise [Recovered/Resolved]
  - Retinal detachment [Recovered/Resolved]

NARRATIVE: CASE EVENT DATE: 2018
